FAERS Safety Report 8346361-2 (Version None)
Quarter: 2012Q2

REPORT INFORMATION
  Report Type: 
  Country: None (occurrence: None)
  Receive Date: 20120509
  Receipt Date: 20120504
  Transmission Date: 20120825
  Serious: Yes (Hospitalization)
  Sender: FDA-Public Use
  Company Number: US-AMGEN-USASP2011046013

PATIENT
  Age: 60 Year
  Sex: Female
  Weight: 93.878 kg

DRUGS (15)
  1. ALLOPURINOL [Concomitant]
     Dosage: 300 MG, BID
     Route: 048
  2. PERCOCET [Concomitant]
     Dosage: UNK UNK, PRN
     Route: 048
  3. RECLAST [Concomitant]
     Dosage: 5 MG, Q12MO
     Route: 042
     Dates: end: 20110727
  4. PRILOSEC [Concomitant]
     Dosage: 40 MG, QD
     Route: 048
     Dates: end: 20110727
  5. DIOVAN [Concomitant]
     Dosage: UNK UNK, QD
     Route: 048
     Dates: end: 20110727
  6. KLOR-CON [Concomitant]
     Dosage: 20 MEQ, QD
     Dates: end: 20110727
  7. POTASSIUM CHLORIDE [Concomitant]
     Dosage: UNK UNK, QD
     Route: 048
     Dates: end: 20110727
  8. CIPROFLOXACIN HCL [Concomitant]
     Dosage: UNK
  9. PROTONIX [Concomitant]
     Dosage: 40 MG, UNK
     Route: 048
  10. ENBREL [Suspect]
     Dosage: 50 MG, 2 TIMES/WK
     Route: 030
     Dates: start: 20090605
  11. IRON [Concomitant]
     Dosage: UNK UNK, QD
     Route: 048
     Dates: end: 20110727
  12. VITAMIN D [Concomitant]
     Dosage: 50000 IU, QWK
     Route: 048
     Dates: end: 20110727
  13. ENBREL [Suspect]
     Indication: PSORIATIC ARTHROPATHY
     Dosage: UNK UNK, 2 TIMES/WK
     Route: 030
     Dates: start: 20090529, end: 20110426
  14. FLEXERIL [Concomitant]
     Dosage: UNK
  15. COLCRYS [Concomitant]
     Dosage: 0.6 MG, QD
     Route: 048
     Dates: end: 20111221

REACTIONS (2)
  - THROMBOSIS [None]
  - ANAEMIA [None]
